FAERS Safety Report 8464507 (Version 6)
Quarter: 2013Q3

REPORT INFORMATION
  Report Type: Report from Study
  Country: GB (occurrence: GB)
  Receive Date: 20120319
  Receipt Date: 20130715
  Transmission Date: 20140515
  Serious: Yes (Hospitalization, Other)
  Sender: FDA-Public Use
  Company Number: GB-BRISTOL-MYERS SQUIBB COMPANY-16443798

PATIENT
  Age: 70 Year
  Sex: Male

DRUGS (8)
  1. SAXAGLIPTIN [Suspect]
     Indication: TYPE 2 DIABETES MELLITUS
     Dosage: 13DEC10-19SEP11,04OCT11-20FEB12
     Dates: start: 20101213, end: 20120220
  2. METFORMIN HCL [Suspect]
     Indication: TYPE 2 DIABETES MELLITUS
  3. GLICLAZIDE [Suspect]
     Indication: TYPE 2 DIABETES MELLITUS
     Dosage: M/R TABS
  4. WARFARIN SODIUM [Suspect]
     Dates: start: 20110617
  5. ASPIRIN [Suspect]
     Dosage: 1 DF : ={100MG
  6. SPIRONOLACTONE [Suspect]
     Dosage: 50MG TABS
     Dates: start: 20110830
  7. NEBIVOLOL [Concomitant]
     Dates: start: 20110920
  8. BECLOMETHASONE [Concomitant]
     Dosage: 1 DF: 100 UNITS NOS
     Dates: start: 20110920

REACTIONS (3)
  - Gastric ulcer haemorrhage [Recovered/Resolved]
  - Renal impairment [Recovered/Resolved]
  - Hyperkalaemia [Recovered/Resolved]
